FAERS Safety Report 15159963 (Version 1)
Quarter: 2018Q3

REPORT INFORMATION
  Report Type: Spontaneous
  Country: US (occurrence: US)
  Receive Date: 20180621
  Receipt Date: 20180621
  Transmission Date: 20181010
  Serious: Yes (Life-Threatening, Hospitalization, Disabling)
  Sender: FDA-Public Use
  Company Number: None

PATIENT
  Age: 69 Year
  Sex: Male
  Weight: 56.25 kg

DRUGS (1)
  1. KEYTRUDA [Suspect]
     Active Substance: PEMBROLIZUMAB
     Indication: NEOPLASM

REACTIONS (5)
  - Burns second degree [None]
  - Blister [None]
  - Fatigue [None]
  - Skin ulcer [None]
  - Rash generalised [None]

NARRATIVE: CASE EVENT DATE: 20180601
